FAERS Safety Report 9215529 (Version 2)
Quarter: 2013Q4

REPORT INFORMATION
  Report Type: Spontaneous
  Country: GB (occurrence: GB)
  Receive Date: 20130406
  Receipt Date: 20131011
  Transmission Date: 20140711
  Serious: Yes (Hospitalization)
  Sender: FDA-Public Use
  Company Number: GB-B.I. PHARMACEUTICALS,INC./RIDGEFIELD-2013-BI-09258BY

PATIENT
  Age: 83 Year
  Sex: Female

DRUGS (11)
  1. TELMISARTAN [Suspect]
     Dosage: 80 MG
     Route: 065
     Dates: start: 200710
  2. TELMISARTAN [Suspect]
     Dosage: 2 MG
     Route: 065
     Dates: start: 200710
  3. ASPIRIN [Suspect]
     Dosage: 75 MG
  4. BISOPROLOL [Suspect]
     Dosage: 5 MG
  5. CITALOPRAM [Suspect]
     Indication: DEPRESSION
     Dosage: 20 MG
     Route: 065
     Dates: start: 201207
  6. DOXAZOSIN MESILATE [Suspect]
     Dosage: 8 MG
     Route: 065
  7. DOXAZOSIN MESILATE [Suspect]
     Route: 065
     Dates: start: 200710
  8. AMLODIPINE [Suspect]
     Dosage: 5 MG
     Route: 065
  9. FUROSEMIDE [Suspect]
     Dosage: 80 MG
  10. ATENOLOL [Suspect]
     Indication: HYPERTENSION
     Dosage: 25 MG
     Route: 065
     Dates: start: 201209
  11. ATENOLOL [Suspect]
     Dosage: 50 MG
     Route: 065
     Dates: start: 201209

REACTIONS (7)
  - Dyspnoea [Unknown]
  - Fluid overload [Unknown]
  - Blood cholesterol increased [Unknown]
  - Weight loss poor [Unknown]
  - Low density lipoprotein [Unknown]
  - Pulmonary congestion [Unknown]
  - Oedema [Unknown]
